FAERS Safety Report 25401042 (Version 3)
Quarter: 2025Q3

REPORT INFORMATION
  Report Type: Spontaneous
  Country: US (occurrence: US)
  Receive Date: 20250605
  Receipt Date: 20250715
  Transmission Date: 20251021
  Serious: No
  Sender: ABBVIE
  Company Number: US-ABBVIE-6313536

PATIENT
  Age: 64 Year
  Sex: Female
  Weight: 59.8 kg

DRUGS (1)
  1. HUMIRA [Suspect]
     Active Substance: ADALIMUMAB
     Indication: Rheumatoid arthritis
     Dosage: FORM STRENGTH: 40 MILLIGRAM
     Route: 058
     Dates: start: 202410

REACTIONS (5)
  - Dupuytren^s contracture [Not Recovered/Not Resolved]
  - COVID-19 [Recovered/Resolved]
  - Speech disorder [Unknown]
  - Nasal congestion [Not Recovered/Not Resolved]
  - Laryngitis [Recovering/Resolving]

NARRATIVE: CASE EVENT DATE: 20250507
